FAERS Safety Report 9617285 (Version 1)
Quarter: 2013Q4

REPORT INFORMATION
  Report Type: Spontaneous
  Country: US (occurrence: None)
  Receive Date: 20131009
  Receipt Date: 20131009
  Transmission Date: 20140711
  Serious: Yes (Death)
  Sender: FDA-Public Use
  Company Number: 2013AP008603

PATIENT
  Age: 6 Month
  Sex: Male

DRUGS (1)
  1. AZITHROMYCIN TABLETS [Suspect]
     Dosage: PARN

REACTIONS (1)
  - Medication error [None]
